FAERS Safety Report 15600806 (Version 1)
Quarter: 2018Q4

REPORT INFORMATION
  Report Type: Spontaneous
  Country: US (occurrence: US)
  Receive Date: 20181108
  Receipt Date: 20181108
  Transmission Date: 20190205
  Serious: No
  Sender: FDA-Public Use
  Company Number: None

PATIENT

DRUGS (1)
  1. SUPER GREEN KRATOM POWDER [Suspect]
     Active Substance: MITRAGYNINE\HERBALS
     Dates: start: 201808, end: 201809

REACTIONS (5)
  - Unevaluable event [None]
  - Palpitations [None]
  - Diarrhoea [None]
  - Dehydration [None]
  - Vomiting [None]

NARRATIVE: CASE EVENT DATE: 201808
